FAERS Safety Report 9551689 (Version 1)
Quarter: 2013Q3

REPORT INFORMATION
  Report Type: Spontaneous
  Country: US (occurrence: None)
  Receive Date: 20130724
  Receipt Date: 20130724
  Transmission Date: 20140515
  Serious: Yes (Other)
  Sender: FDA-Public Use
  Company Number: PHEH2013US006659

PATIENT
  Sex: 0

DRUGS (1)
  1. GLEEVEC (IMATINIB) [Suspect]
     Indication: GASTROINTESTINAL STROMAL TUMOUR

REACTIONS (2)
  - Gastrointestinal stromal tumour [None]
  - Neoplasm recurrence [None]
